FAERS Safety Report 7928719-6 (Version None)
Quarter: 2011Q4

REPORT INFORMATION
  Report Type: 
  Country: None (occurrence: None)
  Receive Date: 20111118
  Receipt Date: 20111113
  Transmission Date: 20120403
  Serious: Yes (Life-Threatening)
  Sender: FDA-Public Use
  Company Number: DE-CELGENEUS-062-50794-11090652

PATIENT
  Age: 78 Year
  Sex: Female

DRUGS (1)
  1. VIDAZA [Suspect]
     Route: 065
     Dates: start: 20110201, end: 20110501

REACTIONS (2)
  - NO THERAPEUTIC RESPONSE [None]
  - ACUTE MYELOID LEUKAEMIA [None]
